FAERS Safety Report 9853542 (Version 1)
Quarter: 2014Q1

REPORT INFORMATION
  Report Type: Spontaneous
  Country: GB (occurrence: GB)
  Receive Date: 20140129
  Receipt Date: 20140129
  Transmission Date: 20141002
  Serious: Yes (Death, Other)
  Sender: FDA-Public Use
  Company Number: GB-ACTAVIS-2014-00825

PATIENT
  Age: 70 Year
  Sex: Male

DRUGS (1)
  1. DOXYCYCLINE HYCLATE (UNKNOWN) [Suspect]
     Indication: LOWER RESPIRATORY TRACT INFECTION
     Dosage: UNK
     Route: 048
     Dates: start: 20131215

REACTIONS (5)
  - Hepatotoxicity [Fatal]
  - Shock [Unknown]
  - Jaundice [Unknown]
  - Encephalopathy [Unknown]
  - Coagulopathy [Unknown]
